FAERS Safety Report 5878570-6 (Version None)
Quarter: 2008Q3

REPORT INFORMATION
  Report Type: 
  Country: None (occurrence: None)
  Receive Date: 20080910
  Receipt Date: 20080902
  Transmission Date: 20090109
  Serious: Yes (Hospitalization, Other)
  Sender: FDA-Public Use
  Company Number: 2008SP010579

PATIENT
  Age: 36 Year
  Sex: Male
  Weight: 108.8633 kg

DRUGS (6)
  1. PEG-INTRON [Suspect]
     Indication: HEPATITIS C
     Dosage: 150 MCG; QW; SC
     Route: 058
     Dates: start: 20071106, end: 20080602
  2. REBETOL [Suspect]
     Indication: HEPATITIS C
     Dosage: 600 MG; BID; PO
     Route: 048
     Dates: start: 20071116, end: 20080602
  3. BUSPAR [Concomitant]
  4. LORAZEPAM [Concomitant]
  5. TRAZODONE HCL [Concomitant]
  6. ATENOLOL [Concomitant]

REACTIONS (25)
  - ABDOMINAL PAIN [None]
  - ABDOMINAL PAIN UPPER [None]
  - ANOREXIA [None]
  - BACK PAIN [None]
  - CHEST DISCOMFORT [None]
  - CONDITION AGGRAVATED [None]
  - CONFUSIONAL STATE [None]
  - DEPRESSION [None]
  - DISORIENTATION [None]
  - DRUG ABUSE [None]
  - FEELING ABNORMAL [None]
  - GALLBLADDER DISORDER [None]
  - HALLUCINATION, AUDITORY [None]
  - HOMICIDAL IDEATION [None]
  - HORMONE LEVEL ABNORMAL [None]
  - INSOMNIA [None]
  - IRRITABILITY [None]
  - MENTAL DISORDER [None]
  - MOOD SWINGS [None]
  - OESOPHAGEAL PAIN [None]
  - PANIC ATTACK [None]
  - PSYCHOTIC DISORDER [None]
  - SUICIDAL IDEATION [None]
  - VOMITING [None]
  - WEIGHT DECREASED [None]
